FAERS Safety Report 10377092 (Version 1)
Quarter: 2014Q3

REPORT INFORMATION
  Report Type: Report from Study
  Country: US (occurrence: US)
  Receive Date: 20140812
  Receipt Date: 20140812
  Transmission Date: 20150326
  Serious: Yes (Hospitalization, Other)
  Sender: FDA-Public Use
  Company Number: US-ALEXION PHARMACEUTICALS INC.-A201305495

PATIENT

DRUGS (1)
  1. SOLIRIS [Suspect]
     Active Substance: ECULIZUMAB
     Indication: HAEMOLYTIC URAEMIC SYNDROME
     Dosage: UNK
     Route: 042

REACTIONS (9)
  - Blood pressure increased [Unknown]
  - Oliguria [Unknown]
  - Pyrexia [Unknown]
  - Upper respiratory tract infection [Unknown]
  - Swelling [Unknown]
  - Urinary tract infection [Unknown]
  - Feeding disorder of infancy or early childhood [Unknown]
  - Tachypnoea [Unknown]
  - Irritability [Unknown]
